FAERS Safety Report 7499354-1 (Version None)
Quarter: 2011Q2

REPORT INFORMATION
  Report Type: 
  Country: None (occurrence: None)
  Receive Date: 20110524
  Receipt Date: 20110512
  Transmission Date: 20111010
  Serious: Yes (Hospitalization)
  Sender: FDA-Public Use
  Company Number: GB-SOLVAY-00311004014

PATIENT
  Sex: Female

DRUGS (1)
  1. CREON [Suspect]
     Indication: CYSTIC FIBROSIS
     Dosage: DAILY DOSE:  UNKNOWN
     Route: 065

REACTIONS (4)
  - CYSTIC FIBROSIS [None]
  - UPPER LIMB FRACTURE [None]
  - MORAXELLA INFECTION [None]
  - WEIGHT DECREASED [None]
